FAERS Safety Report 9717482 (Version 2)
Quarter: 2015Q3

REPORT INFORMATION
  Report Type: Spontaneous
  Country: US (occurrence: US)
  Receive Date: 20131127
  Receipt Date: 20150803
  Transmission Date: 20151125
  Serious: Yes (Other)
  Sender: FDA-Public Use
  Company Number: US-GILEAD-2009-0019850

PATIENT
  Age: 93 Year
  Sex: Male

DRUGS (24)
  1. AZMACORT [Concomitant]
     Active Substance: TRIAMCINOLONE ACETONIDE
  2. MAXAIR [Concomitant]
     Active Substance: PIRBUTEROL ACETATE
  3. THYROID [Concomitant]
     Active Substance: LEVOTHYROXINE\LIOTHYRONINE
  4. CENTRUM [Concomitant]
     Active Substance: VITAMINS
  5. SPIRIVA [Concomitant]
     Active Substance: TIOTROPIUM BROMIDE MONOHYDRATE
  6. ASPIRIN. [Concomitant]
     Active Substance: ASPIRIN
  7. PEPCID [Concomitant]
     Active Substance: FAMOTIDINE
  8. GLUCOSAMINE [Concomitant]
     Active Substance: GLUCOSAMINE
  9. FLOMAX [Concomitant]
     Active Substance: TAMSULOSIN HYDROCHLORIDE
  10. STOOL SOFTENER [Concomitant]
     Active Substance: DOCUSATE CALCIUM
  11. NORVASC [Concomitant]
     Active Substance: AMLODIPINE BESYLATE
  12. FUROSEMIDE. [Concomitant]
     Active Substance: FUROSEMIDE
  13. OCUVITE [Concomitant]
     Active Substance: VITAMINS
  14. FERROUS SULFATE [Concomitant]
     Active Substance: FERROUS SULFATE\FERROUS SULFATE, DRIED
  15. GLUCOSAMINE [Concomitant]
     Active Substance: GLUCOSAMINE
  16. GLIPIZIDE. [Concomitant]
     Active Substance: GLIPIZIDE
  17. ALEVE [Concomitant]
     Active Substance: NAPROXEN SODIUM
  18. ALFALFA [Concomitant]
     Active Substance: ALFALFA
  19. VITAMIN B12 [Concomitant]
     Active Substance: CYANOCOBALAMIN
  20. LETAIRIS [Suspect]
     Active Substance: AMBRISENTAN
     Indication: PULMONARY ARTERIAL HYPERTENSION
     Route: 048
     Dates: start: 20081103, end: 20090107
  21. AVODART [Concomitant]
     Active Substance: DUTASTERIDE
  22. TYLENOL [Concomitant]
     Active Substance: ACETAMINOPHEN
  23. VITAMIN D [Concomitant]
     Active Substance: CHOLECALCIFEROL
  24. CALCIUM [Concomitant]
     Active Substance: CALCIUM

REACTIONS (2)
  - Dyspnoea [Recovering/Resolving]
  - Oedema [Recovering/Resolving]

NARRATIVE: CASE EVENT DATE: 200811
